FAERS Safety Report 10481055 (Version 1)
Quarter: 2014Q3

REPORT INFORMATION
  Report Type: Spontaneous
  Country: US (occurrence: None)
  Receive Date: 20140925
  Receipt Date: 20140925
  Transmission Date: 20150326
  Serious: Yes (Other)
  Sender: FDA-Public Use
  Company Number: ADR-2014-01303

PATIENT
  Age: 50 Year
  Sex: Female

DRUGS (1)
  1. BACLOFEN. [Suspect]
     Active Substance: BACLOFEN
     Indication: MUSCLE SPASTICITY

REACTIONS (13)
  - Pseudomonas test positive [None]
  - Implant site infection [None]
  - Catheter site swelling [None]
  - Infection [None]
  - Catheter site erythema [None]
  - Meningitis [None]
  - Catheter site discharge [None]
  - Drug withdrawal syndrome [None]
  - Catheter site infection [None]
  - Implant site pain [None]
  - Implant site discharge [None]
  - Implant site swelling [None]
  - Implant site erythema [None]
